FAERS Safety Report 7129525-5 (Version None)
Quarter: 2010Q4

REPORT INFORMATION
  Report Type: 
  Country: None (occurrence: None)
  Receive Date: 20101130
  Receipt Date: 20101126
  Transmission Date: 20110411
  Serious: Yes (Other)
  Sender: FDA-Public Use
  Company Number: GB-B.I. PHARMACEUTICALS,INC./RIDGEFIELD-2010-UK-01147UK

PATIENT

DRUGS (1)
  1. PRADAXA [Suspect]

REACTIONS (1)
  - DEEP VEIN THROMBOSIS [None]
